FAERS Safety Report 6860164-7 (Version None)
Quarter: 2010Q3

REPORT INFORMATION
  Report Type: 
  Country: None (occurrence: None)
  Receive Date: 20100720
  Receipt Date: 20100708
  Transmission Date: 20110219
  Serious: Yes (Other)
  Sender: FDA-Public Use
  Company Number: IT-SANOFI-AVENTIS-2010SA039479

PATIENT
  Age: 70 Year
  Sex: Female

DRUGS (1)
  1. CLEXANE [Suspect]
     Indication: PHLEBITIS
     Dosage: DOSE:1 UNIT(S)
     Route: 058

REACTIONS (2)
  - RASH [None]
  - RESPIRATORY FAILURE [None]
